FAERS Safety Report 7363698-4 (Version None)
Quarter: 2011Q1

REPORT INFORMATION
  Report Type: 
  Country: None (occurrence: None)
  Receive Date: 20110321
  Receipt Date: 20110120
  Transmission Date: 20110831
  Serious: No
  Sender: FDA-Public Use
  Company Number: A0907719A

PATIENT
  Age: 72 Year
  Sex: Male

DRUGS (12)
  1. PROMACTA [Suspect]
     Indication: IDIOPATHIC THROMBOCYTOPENIC PURPURA
     Dosage: 50MG PER DAY
     Route: 048
     Dates: start: 20110107
  2. UNKNOWN [Concomitant]
  3. ALLOPURINOL [Concomitant]
  4. NITROGLYCERIN [Concomitant]
  5. NEXIUM [Concomitant]
  6. JALYN [Concomitant]
  7. RANEXA [Concomitant]
  8. METOPROLOL [Concomitant]
  9. CYMBALTA [Concomitant]
  10. PREDNISONE [Concomitant]
  11. UNKNOWN [Suspect]
     Indication: PULMONARY EMBOLISM
     Dosage: 150MG TWICE PER DAY
     Dates: start: 20110104
  12. SIMVASTATIN [Concomitant]

REACTIONS (2)
  - PLATELET COUNT DECREASED [None]
  - DRUG INTERACTION [None]
